FAERS Safety Report 7042046-3 (Version None)
Quarter: 2010Q4

REPORT INFORMATION
  Report Type: 
  Country: None (occurrence: None)
  Receive Date: 20101013
  Receipt Date: 20100429
  Transmission Date: 20110411
  Serious: No
  Sender: FDA-Public Use
  Company Number: US-ASTRAZENECA-2010SE19542

PATIENT
  Sex: Female

DRUGS (2)
  1. SYMBICORT [Suspect]
     Dosage: 320 MCG DAILY
     Route: 055
     Dates: start: 20080101
  2. ANTIVERT [Concomitant]

REACTIONS (1)
  - VERTIGO [None]
